FAERS Safety Report 22142906 (Version 1)
Quarter: 2023Q1

REPORT INFORMATION
  Report Type: Spontaneous
  Country: US (occurrence: US)
  Receive Date: 20230327
  Receipt Date: 20230327
  Transmission Date: 20230418
  Serious: No
  Sender: FDA-Public Use
  Company Number: US-SANOFI-01545261

PATIENT
  Sex: Male

DRUGS (2)
  1. ELOCTATE [Suspect]
     Active Substance: EFMOROCTOCOG ALFA
     Indication: Factor VIII deficiency
     Dosage: ON MONDAY, WEDNESDAY, AND FRIDAY. INFUSE 3000 UNITS (-10%) INTRAVENOUSLY DAILY AS DIRECTED
     Route: 042
  2. ELOCTATE [Suspect]
     Active Substance: EFMOROCTOCOG ALFA
     Indication: Factor VIII deficiency
     Dosage: ON MONDAY, WEDNESDAY, AND FRIDAY. INFUSE 3000 UNITS (-10%) INTRAVENOUSLY DAILY AS DIRECTED
     Route: 042

REACTIONS (1)
  - Off label use [Unknown]
